FAERS Safety Report 9381370 (Version 1)
Quarter: 2013Q3

REPORT INFORMATION
  Report Type: Spontaneous
  Country: US (occurrence: US)
  Receive Date: 20130703
  Receipt Date: 20130703
  Transmission Date: 20140515
  Serious: Yes (Other)
  Sender: FDA-Public Use
  Company Number: US-SANOFI-AVENTIS-2013SA066967

PATIENT
  Age: 65 Year
  Sex: Male
  Weight: 100.68 kg

DRUGS (4)
  1. PLAVIX [Suspect]
     Indication: STENT PLACEMENT
     Route: 048
  2. METFORMIN HYDROCHLORIDE\SAXAGLIPTIN [Suspect]
  3. LACTULOSE [Concomitant]
  4. MILK OF MAGNESIA [Concomitant]

REACTIONS (3)
  - Diverticulitis [Not Recovered/Not Resolved]
  - Constipation [Not Recovered/Not Resolved]
  - Abdominal pain upper [Not Recovered/Not Resolved]
